FAERS Safety Report 6328118-7 (Version None)
Quarter: 2009Q3

REPORT INFORMATION
  Report Type: 
  Country: None (occurrence: None)
  Receive Date: 20090825
  Receipt Date: 20081124
  Transmission Date: 20100115
  Serious: No
  Sender: FDA-Public Use
  Company Number: US-ABBOTT-08P-163-0489635-00

PATIENT
  Sex: Female

DRUGS (5)
  1. SYNTHROID [Suspect]
     Indication: HYPOTHYROIDISM
     Route: 048
     Dates: start: 19680101
  2. SYNTHROID [Suspect]
     Route: 048
     Dates: end: 20070101
  3. SYNTHROID [Suspect]
     Route: 048
     Dates: start: 20070101, end: 20070101
  4. SYNTHROID [Suspect]
     Dates: start: 20070101, end: 20081101
  5. SYNTHROID [Suspect]
     Route: 048
     Dates: start: 20081101

REACTIONS (1)
  - BLOOD THYROID STIMULATING HORMONE ABNORMAL [None]
